FAERS Safety Report 14959083 (Version 1)
Quarter: 2018Q2

REPORT INFORMATION
  Report Type: Spontaneous
  Country: US (occurrence: US)
  Receive Date: 20180510
  Receipt Date: 20180510
  Transmission Date: 20180711
  Serious: No
  Sender: FDA-Public Use
  Company Number: None

PATIENT
  Age: 54 Year
  Sex: Female

DRUGS (1)
  1. HUMIRA [Suspect]
     Active Substance: ADALIMUMAB
     Indication: PSORIASIS
     Dosage: 40MG/0.8ML EVERY 12 DAYS SUBCATANEOUSLY
     Route: 058
     Dates: start: 20180101

REACTIONS (7)
  - Rash [None]
  - Respiratory tract infection [None]
  - Pain [None]
  - Headache [None]
  - Nausea [None]
  - Systemic lupus erythematosus [None]
  - Oropharyngeal pain [None]

NARRATIVE: CASE EVENT DATE: 20180411
